FAERS Safety Report 25454593 (Version 3)
Quarter: 2025Q4

REPORT INFORMATION
  Report Type: Report from Study
  Country: CA (occurrence: CA)
  Receive Date: 20250619
  Receipt Date: 20251003
  Transmission Date: 20260118
  Serious: Yes (Hospitalization, Other)
  Sender: JOHNSON AND JOHNSON
  Company Number: CA-JNJFOC-20250611456

PATIENT
  Age: 67 Year
  Sex: Male

DRUGS (3)
  1. TREMFYA [Suspect]
     Active Substance: GUSELKUMAB
     Indication: Psoriasis
     Route: 058
     Dates: start: 20200106
  2. TREMFYA [Suspect]
     Active Substance: GUSELKUMAB
     Route: 058
     Dates: start: 20190227
  3. IODINE [Suspect]
     Active Substance: IODINE

REACTIONS (6)
  - Hepatic cirrhosis [Unknown]
  - Injection site extravasation [Unknown]
  - Motor dysfunction [Unknown]
  - Procedural pain [Unknown]
  - Pain in extremity [Unknown]
  - Vein rupture [Unknown]
